FAERS Safety Report 20417381 (Version 2)
Quarter: 2022Q2

REPORT INFORMATION
  Report Type: Spontaneous
  Country: US (occurrence: US)
  Receive Date: 20220202
  Receipt Date: 20220418
  Transmission Date: 20220721
  Serious: Yes (Hospitalization)
  Sender: FDA-Public Use
  Company Number: US-EVOKE PHARMA, INC.-2022EVO000008

PATIENT

DRUGS (1)
  1. GIMOTI [Suspect]
     Active Substance: METOCLOPRAMIDE HYDROCHLORIDE
     Indication: Impaired gastric emptying
     Dosage: 1 DF, TID 30 MINS BEFORE MEAL
     Route: 045
     Dates: start: 20210428

REACTIONS (1)
  - Hospitalisation [Unknown]
